FAERS Safety Report 7412526-7 (Version None)
Quarter: 2011Q2

REPORT INFORMATION
  Report Type: 
  Country: None (occurrence: None)
  Receive Date: 20110413
  Receipt Date: 20110330
  Transmission Date: 20111010
  Serious: Yes (Death, Other)
  Sender: FDA-Public Use
  Company Number: JP-AMGEN-JPNCT2011018608

PATIENT
  Age: 76 Year
  Sex: Female

DRUGS (17)
  1. ROCALTROL [Concomitant]
     Indication: HYPERPARATHYROIDISM SECONDARY
     Route: 040
     Dates: end: 20090116
  2. ELCITONIN [Concomitant]
     Indication: HYPERLIPIDAEMIA
     Route: 040
     Dates: end: 20090116
  3. TAKEPRON [Concomitant]
     Indication: REFLUX OESOPHAGITIS
     Route: 048
     Dates: end: 20091110
  4. ITOROL [Concomitant]
     Indication: ANGINA PECTORIS
     Route: 048
     Dates: end: 20091110
  5. SOLON [Concomitant]
     Indication: GASTRITIS
     Route: 048
     Dates: end: 20091110
  6. METHYCOBAL [Concomitant]
     Indication: NEUROPATHY PERIPHERAL
     Route: 048
     Dates: end: 20091110
  7. ORGARAN [Concomitant]
     Route: 040
     Dates: end: 20091106
  8. LENDORMIN DAINIPPO [Concomitant]
     Indication: INSOMNIA
     Route: 048
     Dates: end: 20091110
  9. CATLEP [Concomitant]
     Indication: BACK PAIN
     Route: 062
     Dates: end: 20091110
  10. SENNOSIDE [Concomitant]
     Indication: CONSTIPATION
     Route: 048
     Dates: end: 20091110
  11. LOXONIN [Concomitant]
     Indication: BACK PAIN
     Route: 048
     Dates: end: 20091110
  12. MEROPEN [Concomitant]
     Route: 040
     Dates: end: 20091118
  13. EPADEL DAINIPPON [Concomitant]
     Indication: HYPERLIPIDAEMIA
     Route: 048
     Dates: end: 20091110
  14. CINACALCET HCL - KHK [Suspect]
     Indication: HYPERPARATHYROIDISM SECONDARY
     Dosage: 25 MG, QD
     Route: 048
     Dates: start: 20090421, end: 20091110
  15. MAGMITT [Concomitant]
     Indication: CONSTIPATION
     Route: 048
     Dates: end: 20091110
  16. FRANDOL [Concomitant]
     Indication: ANGINA PECTORIS
     Route: 062
     Dates: end: 20091110
  17. HICEE [Concomitant]
     Indication: IRON METABOLISM DISORDER
     Route: 048
     Dates: end: 20091110

REACTIONS (3)
  - DEATH [None]
  - DISSEMINATED INTRAVASCULAR COAGULATION [None]
  - PYREXIA [None]
